FAERS Safety Report 16936090 (Version 2)
Quarter: 2020Q1

REPORT INFORMATION
  Report Type: Spontaneous
  Country: US (occurrence: US)
  Receive Date: 20191018
  Receipt Date: 20200120
  Transmission Date: 20200409
  Serious: No
  Sender: FDA-Public Use
  Company Number: US-INSMED, INC.-US-INS-19-02313

PATIENT
  Age: 65 Year
  Sex: Female
  Weight: 57.66 kg

DRUGS (4)
  1. ARIKAYCE [Suspect]
     Active Substance: AMIKACIN
     Indication: PULMONARY EOSINOPHILIA
     Route: 055
     Dates: start: 2019
  2. LAMIRA NEBULIZER SYSTEM [Suspect]
     Active Substance: DEVICE
  3. ARIKAYCE [Suspect]
     Active Substance: AMIKACIN
     Indication: BRONCHIECTASIS
     Route: 055
     Dates: start: 20190517, end: 2019
  4. ARIKAYCE [Suspect]
     Active Substance: AMIKACIN
     Indication: BURKHOLDERIA MALLEI INFECTION

REACTIONS (8)
  - Peripheral swelling [Unknown]
  - Intentional dose omission [Unknown]
  - Sensitive skin [Unknown]
  - Nasopharyngitis [Not Recovered/Not Resolved]
  - Blister [Unknown]
  - Off label use [Unknown]
  - Lower respiratory tract infection [Not Recovered/Not Resolved]
  - Arthralgia [Not Recovered/Not Resolved]

NARRATIVE: CASE EVENT DATE: 2019
